FAERS Safety Report 12936008 (Version 4)
Quarter: 2017Q2

REPORT INFORMATION
  Report Type: Spontaneous
  Country: US (occurrence: US)
  Receive Date: 20161114
  Receipt Date: 20170421
  Transmission Date: 20170830
  Serious: Yes (Other)
  Sender: FDA-Public Use
  Company Number: US-AMGEN-USASP2016157300

PATIENT
  Age: 59 Year
  Sex: Female

DRUGS (1)
  1. PROLIA [Suspect]
     Active Substance: DENOSUMAB
     Indication: OSTEOPOROSIS POSTMENOPAUSAL
     Dosage: 60 MG, Q6MO
     Route: 065
     Dates: start: 20160720

REACTIONS (15)
  - Sensory disturbance [Unknown]
  - Breast mass [Recovering/Resolving]
  - Breast tenderness [Not Recovered/Not Resolved]
  - Scar [Recovering/Resolving]
  - Breast pain [Unknown]
  - Dyspnoea [Not Recovered/Not Resolved]
  - Skin disorder [Not Recovered/Not Resolved]
  - Malaise [Unknown]
  - Breast cyst [Recovering/Resolving]
  - Breast disorder [Recovered/Resolved]
  - Lymphadenopathy [Not Recovered/Not Resolved]
  - Post-traumatic stress disorder [Recovering/Resolving]
  - Mastitis [Recovering/Resolving]
  - Breast fibrosis [Unknown]
  - Post procedural infection [Recovering/Resolving]

NARRATIVE: CASE EVENT DATE: 2016
